FAERS Safety Report 6506211-3 (Version None)
Quarter: 2009Q4

REPORT INFORMATION
  Report Type: 
  Country: None (occurrence: None)
  Receive Date: 20091218
  Receipt Date: 20091208
  Transmission Date: 20100525
  Serious: Yes (Hospitalization)
  Sender: FDA-Public Use
  Company Number: PHHY2009JP42133

PATIENT
  Sex: Male

DRUGS (4)
  1. ZOMETA [Suspect]
     Indication: BONE LESION
     Dosage: 4MG (PER ADMINISTRATION)
     Route: 042
     Dates: start: 20070420, end: 20090513
  2. DECADRON [Concomitant]
     Indication: PROSTATE CANCER
     Dosage: UNK
     Route: 048
     Dates: start: 20070801
  3. ZOLADEX [Concomitant]
     Indication: PROSTATE CANCER
     Dosage: UNK
     Route: 058
     Dates: start: 20061222
  4. DOCETAXEL [Concomitant]

REACTIONS (4)
  - MOUTH HAEMORRHAGE [None]
  - OSTEOMYELITIS [None]
  - PAIN [None]
  - SWELLING [None]
